FAERS Safety Report 6501287-1 (Version None)
Quarter: 2009Q4

REPORT INFORMATION
  Report Type: 
  Country: None (occurrence: None)
  Receive Date: 20091127
  Receipt Date: 20091022
  Transmission Date: 20100525
  Serious: No
  Sender: FDA-Public Use
  Company Number: 002193

PATIENT

DRUGS (4)
  1. LACOSAMIDE [Suspect]
     Indication: NEURALGIA
     Dosage: 50 MG BID ORAL
     Route: 048
  2. TRAMADOL [Concomitant]
  3. LYRICA [Concomitant]
  4. NEURONTIN [Concomitant]

REACTIONS (3)
  - DRUG INEFFECTIVE [None]
  - OFF LABEL USE [None]
  - PRODUCT QUALITY ISSUE [None]
